FAERS Safety Report 21781674 (Version 1)
Quarter: 2022Q4

REPORT INFORMATION
  Report Type: Spontaneous
  Country: US (occurrence: None)
  Receive Date: 20221223
  Receipt Date: 20221223
  Transmission Date: 20230112
  Serious: Yes (Hospitalization)
  Sender: FDA-Public Use
  Company Number: None

PATIENT
  Age: 71 Year
  Sex: Female
  Weight: 72.6 kg

DRUGS (1)
  1. TEMOZOLOMIDE [Suspect]
     Active Substance: TEMOZOLOMIDE

REACTIONS (9)
  - Muscular weakness [None]
  - Necrotising fasciitis [None]
  - Limb injury [None]
  - Seizure [None]
  - Cerebrovascular accident [None]
  - Hemiparesis [None]
  - Sepsis [None]
  - Faecaluria [None]
  - Enterovesical fistula [None]

NARRATIVE: CASE EVENT DATE: 20220916
